FAERS Safety Report 6903027-0 (Version None)
Quarter: 2010Q3

REPORT INFORMATION
  Report Type: 
  Country: None (occurrence: None)
  Receive Date: 20100803
  Receipt Date: 20080710
  Transmission Date: 20110219
  Serious: No
  Sender: FDA-Public Use
  Company Number: US-PFIZER INC-2008059332

PATIENT
  Sex: Female
  Weight: 90.7 kg

DRUGS (2)
  1. LYRICA [Suspect]
     Indication: NEURALGIA
  2. ADALIMUMAB [Interacting]
     Indication: PSORIATIC ARTHROPATHY
     Dosage: 1 EVERY 2 WEEKS
     Route: 058
     Dates: start: 20071015

REACTIONS (5)
  - DRUG INEFFECTIVE [None]
  - DRUG INTERACTION [None]
  - NEURALGIA [None]
  - PAIN [None]
  - PSORIASIS [None]
